FAERS Safety Report 7450021-X (Version None)
Quarter: 2011Q2

REPORT INFORMATION
  Report Type: 
  Country: None (occurrence: None)
  Receive Date: 20110502
  Receipt Date: 20110420
  Transmission Date: 20111010
  Serious: Yes (Hospitalization, Other)
  Sender: FDA-Public Use
  Company Number: US-BAYER-2011-036410

PATIENT
  Age: 63 Year
  Sex: Female

DRUGS (2)
  1. ALCOWIPES [Suspect]
     Indication: PRODUCT USED FOR UNKNOWN INDICATION
  2. BETASERON [Suspect]
     Indication: RELAPSING-REMITTING MULTIPLE SCLEROSIS
     Dosage: 0.3 MG
     Dates: start: 20080201, end: 20110414

REACTIONS (8)
  - CYSTITIS [None]
  - INJECTION SITE SWELLING [None]
  - INJECTION SITE ERYTHEMA [None]
  - HIP ARTHROPLASTY [None]
  - VOMITING [None]
  - ESCHERICHIA INFECTION [None]
  - VAGINAL INFECTION [None]
  - DIARRHOEA [None]
